FAERS Safety Report 4461311-7 (Version None)
Quarter: 2004Q3

REPORT INFORMATION
  Report Type: 
  Country: None (occurrence: None)
  Receive Date: 20040928
  Receipt Date: 20040913
  Transmission Date: 20050211
  Serious: Yes (Death)
  Sender: FDA-Public Use
  Company Number: NL-GLAXOSMITHKLINE-B0346086A

PATIENT
  Age: 66 Year
  Sex: Female

DRUGS (5)
  1. VALACYCLOVIR HCL [Suspect]
     Route: 048
  2. CYCLOSPORINE [Concomitant]
  3. PROGRAF [Concomitant]
  4. STEROID [Concomitant]
  5. SIMULECT [Concomitant]

REACTIONS (2)
  - GRANULOCYTOPENIA [None]
  - SEPSIS [None]
